FAERS Safety Report 6508245-1 (Version None)
Quarter: 2009Q4

REPORT INFORMATION
  Report Type: 
  Country: None (occurrence: None)
  Receive Date: 20091221
  Receipt Date: 20081211
  Transmission Date: 20100525
  Serious: No
  Sender: FDA-Public Use
  Company Number: US-ASTRAZENECA-2008UW27797

PATIENT
  Age: 50 Year
  Sex: Male
  Weight: 74.8 kg

DRUGS (3)
  1. CRESTOR [Suspect]
     Indication: BLOOD CHOLESTEROL
     Route: 048
     Dates: start: 20080701
  2. ASPIRIN [Concomitant]
  3. OMEPROZOLE [Concomitant]
     Route: 048

REACTIONS (3)
  - ASTHENIA [None]
  - DEPRESSED MOOD [None]
  - FATIGUE [None]
